FAERS Safety Report 20706031 (Version 2)
Quarter: 2024Q3

REPORT INFORMATION
  Report Type: Spontaneous
  Country: US (occurrence: US)
  Receive Date: 20220413
  Receipt Date: 20240712
  Transmission Date: 20241016
  Serious: No
  Sender: BIOMARIN
  Company Number: US-SA-SAC20220407001752

PATIENT

DRUGS (1)
  1. LARONIDASE [Suspect]
     Active Substance: LARONIDASE
     Indication: Mucopolysaccharidosis I
     Dosage: 8.7 MG, QW
     Route: 042
     Dates: start: 20201027

REACTIONS (1)
  - Enzyme level increased [Recovered/Resolved]
